FAERS Safety Report 23293450 (Version 1)
Quarter: 2023Q4

REPORT INFORMATION
  Report Type: Report from Study
  Country: TR (occurrence: TR)
  Receive Date: 20231213
  Receipt Date: 20231213
  Transmission Date: 20240110
  Serious: Yes (Other)
  Sender: FDA-Public Use
  Company Number: TR-SUN PHARMACEUTICAL INDUSTRIES LTD-2023R1-423280

PATIENT
  Age: 4 Year

DRUGS (3)
  1. IRINOTECAN [Suspect]
     Active Substance: IRINOTECAN
     Indication: Chemotherapy
     Dosage: 50 MILLIGRAM/SQ. METER PER DOSE, ON DAYS 0-4
     Route: 042
  2. TEMOZOLOMIDE [Suspect]
     Active Substance: TEMOZOLOMIDE
     Indication: Chemotherapy
     Dosage: 100 MILLIGRAM/SQ. METER PER DOSE, ON DAYS 0-4
     Route: 048
  3. DINUTUXIMAB [Suspect]
     Active Substance: DINUTUXIMAB
     Indication: Chemotherapy
     Dosage: 10 MILLIGRAM/SQ. METER, DAILY ON DAYS 1-10
     Route: 042

REACTIONS (1)
  - Therapy partial responder [Unknown]
